FAERS Safety Report 12476686 (Version 2)
Quarter: 2016Q3

REPORT INFORMATION
  Report Type: Spontaneous
  Country: FR (occurrence: FR)
  Receive Date: 20160617
  Receipt Date: 20160714
  Transmission Date: 20161109
  Serious: Yes (Death, Hospitalization, Other)
  Sender: FDA-Public Use
  Company Number: FR-BRISTOL-MYERS SQUIBB COMPANY-BMS-2016-046085

PATIENT
  Age: 48 Year
  Sex: Male

DRUGS (1)
  1. NIVOLUMAB BMS [Suspect]
     Active Substance: NIVOLUMAB
     Indication: BRONCHIAL CARCINOMA
     Dosage: 3 MG/KG, Q2WK
     Route: 041
     Dates: start: 20160413

REACTIONS (4)
  - Adrenal insufficiency [Unknown]
  - Haemoptysis [Unknown]
  - Renal failure [Fatal]
  - Dialysis [Unknown]

NARRATIVE: CASE EVENT DATE: 20160425
